FAERS Safety Report 6122613-1 (Version None)
Quarter: 2009Q1

REPORT INFORMATION
  Report Type: 
  Country: None (occurrence: None)
  Receive Date: 20090318
  Receipt Date: 20090309
  Transmission Date: 20090719
  Serious: Yes (Other)
  Sender: FDA-Public Use
  Company Number: US-AVENTIS-200715144US

PATIENT
  Sex: Male
  Weight: 70.31 kg

DRUGS (5)
  1. DDAVP [Suspect]
     Dosage: DOSE: 3 TABLETS DECREASED TO ONE SIXTEENTH OF A 0.1 MG TABLET
     Route: 048
     Dates: end: 20081001
  2. DDAVP [Suspect]
     Dosage: DOSE: UNK
     Route: 045
     Dates: start: 19970101
  3. WELLBUTRIN [Concomitant]
     Dosage: DOSE: UNK
  4. ANTIDEPRESSANTS [Concomitant]
     Dosage: DOSE: UNK
     Dates: start: 19980101
  5. DESYREL [Concomitant]
     Dates: end: 20070101

REACTIONS (3)
  - COGNITIVE DISORDER [None]
  - CONDITION AGGRAVATED [None]
  - DEPRESSION [None]
